FAERS Safety Report 4335644-9 (Version None)
Quarter: 2004Q2

REPORT INFORMATION
  Report Type: 
  Country: None (occurrence: None)
  Receive Date: 20040406
  Receipt Date: 20040322
  Transmission Date: 20050107
  Serious: Yes (Hospitalization)
  Sender: FDA-Public Use
  Company Number: K200400437

PATIENT
  Age: 58 Year
  Sex: Male

DRUGS (11)
  1. ALTACE [Suspect]
     Indication: PROPHYLAXIS
     Dosage: ORAL
     Route: 048
  2. LIPITOR [Concomitant]
  3. TOPROL-XL [Concomitant]
  4. FAMVIR [Concomitant]
  5. NITROGLYCERIN ^A.L.^ (GLYCERYL TRINITRATE) [Concomitant]
  6. ASPIRIN [Concomitant]
  7. HAWTHORN (CRATEGUS) [Concomitant]
  8. VALERIAN [Concomitant]
  9. OMEGA 3 (FISH OIL) [Concomitant]
  10. MULTIVITAMIN ^LAPPE^ (VITAMINS NOS) [Concomitant]
  11. SUPERTIN [Concomitant]

REACTIONS (2)
  - HEPATITIS [None]
  - LIVER TRANSPLANT [None]
